FAERS Safety Report 13100290 (Version 1)
Quarter: 2017Q1

REPORT INFORMATION
  Report Type: Spontaneous
  Country: RO (occurrence: RO)
  Receive Date: 20170110
  Receipt Date: 20170110
  Transmission Date: 20170428
  Serious: Yes (Life-Threatening)
  Sender: FDA-Public Use
  Company Number: RO-ROCHE-1876193

PATIENT
  Age: 25 Year
  Sex: Male

DRUGS (16)
  1. RIVOTRIL [Suspect]
     Active Substance: CLONAZEPAM
     Route: 048
     Dates: start: 2016, end: 2016
  2. RIVOTRIL [Suspect]
     Active Substance: CLONAZEPAM
     Route: 048
     Dates: start: 2016, end: 2016
  3. QUETIAPINE. [Concomitant]
     Active Substance: QUETIAPINE
     Route: 065
     Dates: start: 2016
  4. AMISULPRID [Concomitant]
     Active Substance: AMISULPRIDE
     Indication: MAJOR DEPRESSION
     Route: 065
     Dates: start: 20160530
  5. VENLAFAXINE [Concomitant]
     Active Substance: VENLAFAXINE HYDROCHLORIDE
     Indication: MAJOR DEPRESSION
     Route: 065
     Dates: start: 2016
  6. TIAPRIDUM [Concomitant]
     Indication: MAJOR DEPRESSION
     Route: 065
     Dates: start: 20160525, end: 20160527
  7. MIDAZOLAM MALEATE [Suspect]
     Active Substance: MIDAZOLAM MALEATE
     Indication: PRODUCT USED FOR UNKNOWN INDICATION
     Route: 048
     Dates: start: 2012
  8. RIVOTRIL [Suspect]
     Active Substance: CLONAZEPAM
     Route: 048
     Dates: start: 2016
  9. TRAZODONE [Concomitant]
     Active Substance: TRAZODONE HYDROCHLORIDE
     Indication: MAJOR DEPRESSION
     Route: 065
     Dates: start: 2016
  10. TRAZODONE [Concomitant]
     Active Substance: TRAZODONE HYDROCHLORIDE
     Route: 065
     Dates: start: 20160527
  11. DULOXETINE. [Concomitant]
     Active Substance: DULOXETINE
     Route: 065
  12. QUETIAPINE. [Concomitant]
     Active Substance: QUETIAPINE
     Indication: MAJOR DEPRESSION
     Route: 065
     Dates: start: 2012
  13. CLOZAPINE. [Concomitant]
     Active Substance: CLOZAPINE
     Indication: MAJOR DEPRESSION
     Route: 065
     Dates: start: 20160527, end: 20160602
  14. AMISULPRID [Concomitant]
     Active Substance: AMISULPRIDE
     Route: 065
  15. ESCITALOPRAM OXALATE. [Concomitant]
     Active Substance: ESCITALOPRAM OXALATE
     Indication: MAJOR DEPRESSION
     Route: 065
     Dates: start: 2012
  16. RIVOTRIL [Suspect]
     Active Substance: CLONAZEPAM
     Indication: MAJOR DEPRESSION
     Route: 048
     Dates: start: 2012

REACTIONS (3)
  - Off label use [Unknown]
  - Suicide attempt [Unknown]
  - Overdose [Unknown]

NARRATIVE: CASE EVENT DATE: 2012
